FAERS Safety Report 6814254-5 (Version None)
Quarter: 2010Q3

REPORT INFORMATION
  Report Type: 
  Country: None (occurrence: None)
  Receive Date: 20100702
  Receipt Date: 20100621
  Transmission Date: 20110219
  Serious: Yes (Other)
  Sender: FDA-Public Use
  Company Number: US-ELI_LILLY_AND_COMPANY-US201005006522

PATIENT
  Sex: Female
  Weight: 63.039 kg

DRUGS (9)
  1. FORTEO [Suspect]
     Indication: OSTEOPOROSIS
     Dosage: 20 UG, DAILY (1/D)
     Dates: start: 20091001
  2. SYNTHROID [Concomitant]
     Dosage: 150 UG, DAILY (1/D)
  3. TRAMADOL HCL [Concomitant]
     Dosage: 50 MG, 3/D
  4. POTASSIUM [Concomitant]
     Dosage: 10 MEQ, DAILY (1/D)
  5. XANAX [Concomitant]
     Dosage: 1 MG, DAILY (1/D)
  6. LASIX [Concomitant]
     Dosage: 60 MG, DAILY (1/D)
  7. LISINOPRIL [Concomitant]
     Dosage: 20 MG, 2/D
  8. AMBIEN [Concomitant]
     Dosage: 10 MG, EACH EVENING
  9. COUMADIN [Concomitant]
     Dosage: 5 MG, DAILY (1/D)

REACTIONS (2)
  - B-CELL SMALL LYMPHOCYTIC LYMPHOMA [None]
  - FOLLICLE CENTRE LYMPHOMA, FOLLICULAR GRADE I, II, III STAGE IV [None]
